FAERS Safety Report 7508518-X (Version None)
Quarter: 2011Q2

REPORT INFORMATION
  Report Type: 
  Country: None (occurrence: None)
  Receive Date: 20110527
  Receipt Date: 20110518
  Transmission Date: 20111010
  Serious: Yes (Hospitalization)
  Sender: FDA-Public Use
  Company Number: JP-EISAI INC-E2020-08599-SPO-JP

PATIENT
  Age: 75 Year
  Sex: Female

DRUGS (15)
  1. TANATRIL [Concomitant]
  2. SELBEX [Concomitant]
     Route: 048
  3. VERAPAMIL HCL [Concomitant]
     Route: 048
  4. WARFARIN SODIUM [Concomitant]
  5. LYRICA [Concomitant]
     Route: 048
  6. RHYTHMY [Concomitant]
     Route: 048
  7. ARICEPT [Suspect]
     Indication: DEMENTIA ALZHEIMER'S TYPE
     Route: 048
  8. LASIX [Concomitant]
  9. LOXONIN [Concomitant]
  10. SERMION [Concomitant]
     Route: 048
  11. ASPARA POTASSIUM [Concomitant]
  12. ALDACTONE [Concomitant]
  13. PLETAL [Concomitant]
  14. ASPIRIN [Concomitant]
  15. LANSOPRAZOLE [Concomitant]
     Route: 048

REACTIONS (1)
  - ATRIOVENTRICULAR BLOCK COMPLETE [None]
